FAERS Safety Report 10880932 (Version 2)
Quarter: 2015Q2

REPORT INFORMATION
  Report Type: Spontaneous
  Country: BR (occurrence: None)
  Receive Date: 20150225
  Receipt Date: 20150624
  Transmission Date: 20150821
  Serious: Yes (Hospitalization, Disabling, Other)
  Sender: FDA-Public Use
  Company Number: BR2014GSK023749

PATIENT
  Age: 61 Year
  Sex: Male
  Weight: 53.1 kg

DRUGS (6)
  1. DOLUTEGRAVIR (DOLUTEGRAVIR) TABLET [Suspect]
     Active Substance: DOLUTEGRAVIR
     Indication: HIV INFECTION
     Route: 048
     Dates: start: 20141010
  2. GANCICLOVIR. [Concomitant]
     Active Substance: GANCICLOVIR
  3. TENOFOVIR [Concomitant]
     Active Substance: TENOFOVIR
  4. BACTRIM (SULFAMETHOXAZOLE + TRIMETHOPRIM) [Concomitant]
  5. AZITHROMYCIN [Concomitant]
     Active Substance: AZITHROMYCIN ANHYDROUS
  6. LAMIVUDINE. [Concomitant]
     Active Substance: LAMIVUDINE

REACTIONS (5)
  - Hypersensitivity [None]
  - Cytomegalovirus chorioretinitis [None]
  - Pain in extremity [None]
  - Condition aggravated [None]
  - Rhabdomyolysis [None]

NARRATIVE: CASE EVENT DATE: 20141020
